FAERS Safety Report 5670953-2 (Version None)
Quarter: 2008Q2

REPORT INFORMATION
  Report Type: 
  Country: None (occurrence: None)
  Receive Date: 20080305
  Receipt Date: 20071030
  Transmission Date: 20081010
  Serious: Yes (Other)
  Sender: FDA-Public Use
  Company Number: BDI-010462

PATIENT
  Age: 50 Year
  Sex: Male

DRUGS (1)
  1. ISOVUE-370 [Suspect]
     Indication: COMPUTERISED TOMOGRAM
     Dosage: 100ML ONCE
     Dates: start: 20071027, end: 20071027

REACTIONS (1)
  - ANAPHYLACTOID REACTION [None]
